FAERS Safety Report 9463117 (Version 1)
Quarter: 2013Q3

REPORT INFORMATION
  Report Type: Report from Study
  Country: US (occurrence: US)
  Receive Date: 20130816
  Receipt Date: 20130816
  Transmission Date: 20140515
  Serious: Yes (Congenital Anomaly)
  Sender: FDA-Public Use
  Company Number: US-B.I. PHARMACEUTICALS,INC./RIDGEFIELD-2013-BI-24741BP

PATIENT
  Sex: Female
  Weight: 2.59 kg

DRUGS (4)
  1. VIRAMUNE [Suspect]
     Indication: EXPOSURE DURING PREGNANCY
     Dosage: 400 MG
     Route: 064
     Dates: start: 20000410
  2. RETROVIR [Concomitant]
     Indication: EXPOSURE DURING PREGNANCY
     Route: 064
     Dates: start: 20000627
  3. RETROVIR [Concomitant]
     Route: 064
     Dates: start: 20000627
  4. COMBIVIR [Concomitant]
     Indication: EXPOSURE DURING PREGNANCY
     Route: 064
     Dates: start: 20000410

REACTIONS (1)
  - Cyst [Recovered/Resolved]
